FAERS Safety Report 13914517 (Version 2)
Quarter: 2017Q4

REPORT INFORMATION
  Report Type: Spontaneous
  Country: US (occurrence: US)
  Receive Date: 20170829
  Receipt Date: 20171124
  Transmission Date: 20180320
  Serious: No
  Sender: FDA-Public Use
  Company Number: US-JNJFOC-20170704464

PATIENT
  Sex: Male

DRUGS (1)
  1. REMICADE [Suspect]
     Active Substance: INFLIXIMAB
     Indication: PRODUCT USED FOR UNKNOWN INDICATION
     Route: 042

REACTIONS (8)
  - Insomnia [Unknown]
  - Peripheral swelling [Unknown]
  - Tendon pain [Unknown]
  - Depression [Unknown]
  - Blood cholesterol increased [Unknown]
  - Drug effect decreased [Unknown]
  - Blood glucose increased [Unknown]
  - Dry mouth [Unknown]
